FAERS Safety Report 8047768-3 (Version None)
Quarter: 2012Q1

REPORT INFORMATION
  Report Type: 
  Country: None (occurrence: None)
  Receive Date: 20120116
  Receipt Date: 20120111
  Transmission Date: 20120608
  Serious: Yes (Death, Life-Threatening, Hospitalization, Other)
  Sender: FDA-Public Use
  Company Number: JP-BAYER-2011-058967

PATIENT
  Age: 69 Year
  Sex: Female
  Weight: 71 kg

DRUGS (43)
  1. TEXMETEN [Concomitant]
     Dosage: UNK
     Route: 061
     Dates: start: 20110707, end: 20110820
  2. GRANDAXIN [Concomitant]
     Dosage: DAILY DOSE 150 MG
     Route: 048
     Dates: start: 20110712, end: 20110726
  3. ALOSENN [Concomitant]
     Dosage: DAILY DOSE .5 G
     Route: 048
     Dates: start: 20110713, end: 20110719
  4. LENDORMIN DAINIPPO [Concomitant]
     Dosage: DAILY DOSE .25 MG
     Route: 048
     Dates: start: 20110720, end: 20110810
  5. AMARYL [Concomitant]
     Indication: DIABETES MELLITUS
     Dosage: 0.5 MG, QD
     Route: 048
     Dates: end: 20110627
  6. NEXAVAR [Suspect]
     Dosage: 400 MG, DAILY
     Route: 048
     Dates: start: 20110725, end: 20110809
  7. NEXAVAR [Suspect]
     Dosage: 200 MG, TID
     Route: 048
     Dates: end: 20110812
  8. FLUTICASONE PROPIONATE [Concomitant]
     Indication: ASTHMA
     Dosage: UNK
     Route: 055
     Dates: end: 20110627
  9. RIZUMCOTE [Concomitant]
     Indication: ARRHYTHMIA
     Dosage: 50 MG, TID
     Route: 048
     Dates: end: 20110627
  10. SYMBICORT [Concomitant]
     Dosage: UNK
     Route: 055
     Dates: start: 20110630, end: 20110820
  11. SELTOUCH [Concomitant]
     Dosage: UNK
     Route: 062
     Dates: start: 20110615, end: 20110823
  12. LAXOBERON [Concomitant]
     Dosage: UNK
     Route: 048
     Dates: start: 20110713, end: 20110730
  13. NEXAVAR [Suspect]
     Indication: HEPATIC NEOPLASM MALIGNANT
     Dosage: 400 MG, BID
     Route: 048
     Dates: start: 20110624, end: 20110724
  14. GLYCYRON [Concomitant]
     Indication: HEPATIC FUNCTION ABNORMAL
     Dosage: 1 DF, TID
     Route: 048
     Dates: end: 20110627
  15. SERESNATT [Concomitant]
     Indication: VASODILATION PROCEDURE
     Dosage: 30 MG, QID
     Route: 048
     Dates: end: 20110627
  16. LASIX [Concomitant]
     Dosage: DAILY DOSE 25 MG
     Route: 048
     Dates: start: 20110628, end: 20110823
  17. LIVACT [Concomitant]
     Dosage: DAILY DOSE 12.45 MG
     Route: 048
     Dates: start: 20110628, end: 20110823
  18. MUCODYNE [Concomitant]
     Dosage: DAILY DOSE 2000 MG
     Route: 048
     Dates: start: 20110707, end: 20110720
  19. ALOSENN [Concomitant]
     Dosage: 1 G, QD
     Route: 048
     Dates: end: 20110627
  20. DEXAMETHASONE SODIUM PHOSPHATE [Concomitant]
     Dosage: DAILY DOSE .165 MG
     Route: 042
     Dates: start: 20110715, end: 20110721
  21. TRANEXAMIC ACID [Concomitant]
     Dosage: DAILY DOSE 1 ML
     Route: 042
     Dates: start: 20110715, end: 20110721
  22. LENDORMIN [Concomitant]
     Indication: INSOMNIA
     Dosage: 0.25 MG, HS
     Route: 048
     Dates: end: 20110627
  23. LANSOPRAZOLE [Concomitant]
     Indication: GASTRIC PH DECREASED
     Dosage: 15 MG, BID
     Route: 048
     Dates: end: 20110823
  24. ALDACTONE [Concomitant]
     Indication: POLYURIA
     Dosage: 25 MG, BID
     Route: 048
     Dates: end: 20110823
  25. NERISONA OINTMENT 0.1% [Concomitant]
     Dosage: UNK
     Route: 061
     Dates: start: 20110624, end: 20110820
  26. FUNGIZONE [Concomitant]
     Dosage: DAILY DOSE 3 ML
     Route: 042
     Dates: start: 20110811, end: 20110824
  27. NITROGLYCERIN [Concomitant]
     Indication: CHEST PAIN
     Dosage: 0.3 MG, PRN
     Route: 048
     Dates: end: 20110627
  28. KERATINAMIN [Concomitant]
     Dosage: UNK
     Route: 061
     Dates: start: 20110623, end: 20110820
  29. ASPARA [ASPARTATE POTASSIUM,MAGNESIUM ASPARTATE] [Concomitant]
     Indication: MINERAL SUPPLEMENTATION
     Dosage: 300 MG, QD
     Route: 048
     Dates: end: 20110627
  30. GASTROM [Concomitant]
     Indication: PEPTIC ULCER
     Dosage: 1 DF, BID
     Route: 048
     Dates: end: 20110627
  31. VERAPAMIL HCL [Concomitant]
     Indication: PALPITATIONS
     Dosage: 40 MG, PRN
     Route: 048
     Dates: end: 20110627
  32. CIBENOL [Concomitant]
     Dosage: DAILY DOSE 50 MG
     Route: 048
     Dates: start: 20110628, end: 20110823
  33. NESINA, ALOGLIPTIN BENZOATE [Concomitant]
     Dosage: DAILY DOSE 12.5 MG
     Route: 048
     Dates: start: 20110628, end: 20110823
  34. DECADRON [Concomitant]
     Dosage: DAILY DOSE 2 MG
     Route: 048
     Dates: start: 20110706, end: 20110823
  35. MAXIPIME [Concomitant]
     Dosage: DAILY DOSE 2 G
     Route: 042
     Dates: start: 20110811, end: 20110824
  36. MEPTIN [Concomitant]
     Indication: ASTHMA
     Dosage: UNK
     Route: 055
     Dates: end: 20110627
  37. NITRODERM [Concomitant]
     Indication: ANGINA PECTORIS
     Dosage: 25 MG, QD
     Route: 062
     Dates: end: 20110627
  38. BUFFERIN A [Concomitant]
     Indication: ANTIPLATELET THERAPY
     Dosage: 81 MG, QD
     Route: 048
     Dates: end: 20110627
  39. FUROSEMIDE [Concomitant]
     Indication: POLYURIA
     Dosage: 20 MG, QD
     Route: 048
     Dates: end: 20110627
  40. SORASILOL [Concomitant]
     Indication: PALPITATIONS
     Dosage: 5 MG, PRN
     Route: 048
     Dates: end: 20110627
  41. CIBENOL [Concomitant]
     Dosage: 50 MG, TID
     Route: 048
     Dates: end: 20110627
  42. URSO 250 [Concomitant]
     Indication: GALLBLADDER DISORDER
     Dosage: 300 MG, TID
     Route: 048
     Dates: end: 20110627
  43. ASPIRIN [Concomitant]
     Dosage: DAILY DOSE 100 MG
     Route: 048
     Dates: start: 20110628

REACTIONS (17)
  - PNEUMONIA [None]
  - PYREXIA [None]
  - RASH [None]
  - DECREASED APPETITE [None]
  - MALAISE [None]
  - BACK PAIN [None]
  - DEPRESSIVE SYMPTOM [None]
  - PANCYTOPENIA [None]
  - HYPERHIDROSIS [None]
  - MUSCLE SPASMS [None]
  - PLATELET COUNT DECREASED [None]
  - SKIN ULCER [None]
  - CONSTIPATION [None]
  - SEPSIS [None]
  - ANAL ABSCESS [None]
  - HEPATIC NEOPLASM MALIGNANT [None]
  - ASPARTATE AMINOTRANSFERASE INCREASED [None]
